FAERS Safety Report 23678103 (Version 1)
Quarter: 2024Q1

REPORT INFORMATION
  Report Type: Spontaneous
  Country: IT (occurrence: IT)
  Receive Date: 20240327
  Receipt Date: 20240327
  Transmission Date: 20240410
  Serious: Yes (Other)
  Sender: FDA-Public Use
  Company Number: None

PATIENT
  Age: 54 Year
  Sex: Male
  Weight: 70 kg

DRUGS (5)
  1. PEMETREXED [Interacting]
     Active Substance: PEMETREXED
     Indication: Lung adenocarcinoma stage IV
     Dosage: 500 MG/M2
     Route: 042
     Dates: start: 20221209, end: 20230119
  2. CISPLATIN [Interacting]
     Active Substance: CISPLATIN
     Indication: Lung adenocarcinoma stage IV
     Dosage: 75 MG/M2
     Route: 042
     Dates: start: 20221209, end: 20230119
  3. YERVOY [Suspect]
     Active Substance: IPILIMUMAB
     Indication: Lung adenocarcinoma stage IV
     Dosage: Q42
     Route: 042
     Dates: start: 20221209, end: 20230824
  4. OPDIVO [Suspect]
     Active Substance: NIVOLUMAB
     Indication: Lung adenocarcinoma stage IV
     Dosage: Q21
     Route: 042
     Dates: start: 20221209, end: 20230824
  5. TAPAZOLE [Concomitant]
     Active Substance: METHIMAZOLE
     Indication: Hyperthyroidism

REACTIONS (6)
  - Hyperthyroidism [Not Recovered/Not Resolved]
  - Rash maculo-papular [Recovered/Resolved]
  - Hypertransaminasaemia [Recovered/Resolved]
  - Blood lactate dehydrogenase increased [Unknown]
  - Toxicity to various agents [Recovered/Resolved]
  - Drug interaction [Unknown]

NARRATIVE: CASE EVENT DATE: 20221209
